FAERS Safety Report 10933436 (Version 1)
Quarter: 2015Q1

REPORT INFORMATION
  Report Type: Spontaneous
  Country: US (occurrence: US)
  Receive Date: 20150320
  Receipt Date: 20150320
  Transmission Date: 20150721
  Serious: Yes (Death)
  Sender: FDA-Public Use
  Company Number: US-PFIZER INC-2014214665

PATIENT
  Age: 75 Year
  Sex: Female
  Weight: 50.8 kg

DRUGS (13)
  1. XALKORI [Suspect]
     Active Substance: CRIZOTINIB
     Indication: LUNG ADENOCARCINOMA STAGE IV
     Dosage: 250 MG, 2X/DAY
     Route: 048
  2. TARCEVA [Concomitant]
     Active Substance: ERLOTINIB HYDROCHLORIDE
     Indication: LUNG ADENOCARCINOMA STAGE IV
     Dosage: 150 MG, DAILY
     Route: 048
     Dates: start: 20140211
  3. ARIMIDEX [Concomitant]
     Active Substance: ANASTROZOLE
     Indication: HORMONE THERAPY
     Dosage: 1 MG, DAILY (TAKE 1 TAB BY MOUTH DAILY)
     Route: 048
     Dates: start: 200503
  4. XANAX [Concomitant]
     Active Substance: ALPRAZOLAM
     Indication: ANXIETY
     Dosage: 0.25 MG, AS NEEDED (TAKE 1 TAB BY MOUTH AT BEDTIMES)
     Route: 048
  5. COUMADIN [Concomitant]
     Active Substance: WARFARIN SODIUM
     Dosage: 2 MG, EVERY 3 DAYS
     Route: 048
  6. CLINDAMAX [Concomitant]
     Active Substance: CLINDAMYCIN PHOSPHATE
     Dosage: UNK, 2X/DAY (1% TOPICAL LOTION, APPLY TO AFFECTED AREA TWICE DAILY. APPLY THINLY)
     Route: 061
  7. BYSTOLIC [Concomitant]
     Active Substance: NEBIVOLOL HYDROCHLORIDE
     Dosage: 5 MG, DAILY
     Route: 048
  8. ISOVUE 370 [Concomitant]
     Active Substance: IOPAMIDOL
     Dosage: 70 ML, UNK (76% INJECTION DOSE: 70 ML)
  9. LOMOTIL [Concomitant]
     Active Substance: ATROPINE SULFATE\DIPHENOXYLATE HYDROCHLORIDE
     Dosage: UNK
  10. CLEOCIN T [Concomitant]
     Active Substance: CLINDAMYCIN PHOSPHATE
     Dosage: UNK, 2X/DAY (1% TOPICAL LOTION, APPLY TO AFFECTED AREA TWICE DAILY. APPLY THINLY)
     Route: 061
  11. XANAX [Concomitant]
     Active Substance: ALPRAZOLAM
     Indication: RESTLESSNESS
  12. SYNTHROID [Concomitant]
     Active Substance: LEVOTHYROXINE SODIUM
     Dosage: 150 UG, DAILY (1 TABLET DAILY)
  13. LIPITOR [Concomitant]
     Active Substance: ATORVASTATIN CALCIUM
     Dosage: 20 MG, DAILY (TAKE 20 MG BY MOUTH DAILY)
     Route: 048

REACTIONS (2)
  - Product use issue [Unknown]
  - Death [Fatal]
